FAERS Safety Report 8232417-1 (Version None)
Quarter: 2012Q1

REPORT INFORMATION
  Report Type: 
  Country: None (occurrence: None)
  Receive Date: 20120323
  Receipt Date: 20120312
  Transmission Date: 20120608
  Serious: Yes (Hospitalization, Other)
  Sender: FDA-Public Use
  Company Number: JP-UCBSA-049680

PATIENT
  Age: 51 Year
  Sex: Female
  Weight: 36 kg

DRUGS (8)
  1. DEPAKENE [Concomitant]
     Indication: MITOCHONDRIAL ENCEPHALOMYOPATHY
     Dosage: DAILY DOSE: 800 MG
     Route: 048
     Dates: start: 20101208, end: 20120104
  2. BASEN OD [Concomitant]
     Indication: DIABETES MELLITUS
     Dosage: DAILY DOSE: 2.7 MG
     Route: 048
  3. TRICHLORMETHIAZIDE [Concomitant]
     Indication: HYPERTENSION
     Dosage: DAILY DOSE: 2 MG
     Route: 048
  4. DOXAZOSIN MESYLATE [Concomitant]
     Indication: HYPERTENSION
     Dosage: DAILY DOSE: 2 MG
     Route: 048
  5. CLONAZEPAM [Concomitant]
     Indication: MITOCHONDRIAL ENCEPHALOMYOPATHY
     Dosage: DAILY DOSE: 0.5 MG
     Route: 048
     Dates: start: 20120105
  6. CALBLOCK [Concomitant]
     Indication: HYPERTENSION
     Dosage: DAILY DOSE: 16 MG
     Route: 048
  7. ALLOPURINOL [Concomitant]
     Indication: HYPERURICAEMIA
     Dosage: DAILY DOSE: 50 MG
     Route: 048
  8. KEPPRA [Suspect]
     Indication: MITOCHONDRIAL ENCEPHALOMYOPATHY
     Route: 048
     Dates: start: 20111227, end: 20120116

REACTIONS (3)
  - PLATELET COUNT DECREASED [None]
  - ANAEMIA [None]
  - WHITE BLOOD CELL COUNT DECREASED [None]
